FAERS Safety Report 10078961 (Version 2)
Quarter: 2014Q2

REPORT INFORMATION
  Report Type: Spontaneous
  Country: US (occurrence: US)
  Receive Date: 20140415
  Receipt Date: 20140415
  Transmission Date: 20141212
  Serious: Yes (Other)
  Sender: FDA-Public Use
  Company Number: US-AMGEN INC.-USASP2014010184

PATIENT
  Age: 81 Year
  Sex: Female
  Weight: 68.03 kg

DRUGS (1)
  1. PROCRIT [Suspect]
     Indication: HAEMOGLOBIN ABNORMAL
     Dosage: 10000 UNIT, Q3MO
     Route: 058

REACTIONS (3)
  - Hypertension [Not Recovered/Not Resolved]
  - Bronchitis [Not Recovered/Not Resolved]
  - Laryngitis [Not Recovered/Not Resolved]
